FAERS Safety Report 22372154 (Version 1)
Quarter: 2023Q2

REPORT INFORMATION
  Report Type: Spontaneous
  Country: US (occurrence: US)
  Receive Date: 20230526
  Receipt Date: 20230526
  Transmission Date: 20230721
  Serious: No
  Sender: FDA-Public Use
  Company Number: US-TARO PHARMACEUTICALS USA INC.-2022TAR01433

PATIENT

DRUGS (1)
  1. TAZAROTENE [Suspect]
     Active Substance: TAZAROTENE
     Indication: Acne
     Dosage: UNK, BID, TOPICALLY TO FOREHEAD AND CHEEKS
     Route: 061
     Dates: start: 20220809, end: 202208

REACTIONS (2)
  - Disease progression [Recovering/Resolving]
  - Scar [Not Recovered/Not Resolved]

NARRATIVE: CASE EVENT DATE: 20221028
